FAERS Safety Report 10991214 (Version 2)
Quarter: 2015Q2

REPORT INFORMATION
  Report Type: Spontaneous
  Country: US (occurrence: US)
  Receive Date: 20150406
  Receipt Date: 20150618
  Transmission Date: 20150821
  Serious: Yes (Death, Hospitalization, Other)
  Sender: FDA-Public Use
  Company Number: US-MERCK-1504USA001950

PATIENT
  Sex: Female
  Weight: 79.37 kg

DRUGS (3)
  1. JANUVIA [Suspect]
     Active Substance: SITAGLIPTIN PHOSPHATE
     Indication: TYPE 2 DIABETES MELLITUS
     Dosage: 100 MG, QD
     Route: 048
     Dates: start: 20110509, end: 201210
  2. JANUMET [Suspect]
     Active Substance: METFORMIN HYDROCHLORIDE\SITAGLIPTIN PHOSPHATE
     Indication: TYPE 2 DIABETES MELLITUS
     Dosage: 50 MG/500 MG, BID
     Route: 048
     Dates: start: 201210, end: 201303
  3. DIOVAN HCT [Concomitant]
     Active Substance: HYDROCHLOROTHIAZIDE\VALSARTAN
     Indication: ESSENTIAL HYPERTENSION
     Dosage: 80-325 MG/12.5-25 MG
     Route: 048

REACTIONS (34)
  - Metastases to lymph nodes [Unknown]
  - Metastases to central nervous system [Unknown]
  - Thyroid neoplasm [Unknown]
  - Radiotherapy to head and neck [Unknown]
  - Hysterectomy [Unknown]
  - Iron deficiency anaemia [Unknown]
  - Biopsy liver [Unknown]
  - Adrenal mass [Unknown]
  - Depression [Unknown]
  - Decreased appetite [Unknown]
  - Intervertebral disc degeneration [Unknown]
  - Blood creatinine increased [Unknown]
  - Constipation [Unknown]
  - Metastases to bone [Unknown]
  - Diabetes mellitus inadequate control [Unknown]
  - Hyperlipidaemia [Unknown]
  - Skin mass [Unknown]
  - Drug ineffective [Unknown]
  - Death [Fatal]
  - Splenic infarction [Unknown]
  - Nerve conduction studies abnormal [Unknown]
  - Pyrexia [Unknown]
  - Dyspnoea [Unknown]
  - Pancreatic carcinoma metastatic [Unknown]
  - Metastases to bone [Unknown]
  - Spinal osteoarthritis [Unknown]
  - Cerebral haemorrhage [Unknown]
  - Haemorrhagic stroke [Unknown]
  - Hyponatraemia [Unknown]
  - Spinal compression fracture [Unknown]
  - Oophorectomy [Unknown]
  - Metastases to liver [Unknown]
  - Radiotherapy to bone [Unknown]
  - Deep vein thrombosis [Unknown]

NARRATIVE: CASE EVENT DATE: 20120807
